APPROVED DRUG PRODUCT: SECRETIN-FERRING
Active Ingredient: SECRETIN
Strength: 75CU/VIAL
Dosage Form/Route: INJECTABLE;INJECTION
Application: N018290 | Product #001
Applicant: FERRING PHARMACEUTICALS INC
Approved: Approved Prior to Jan 1, 1982 | RLD: No | RS: No | Type: DISCN